FAERS Safety Report 8379790-1 (Version None)
Quarter: 2012Q1

REPORT INFORMATION
  Report Type: 
  Country: None (occurrence: None)
  Receive Date: 20120323
  Receipt Date: 20110613
  Transmission Date: 20120608
  Serious: Yes (Other)
  Sender: FDA-Public Use
  Company Number: 163-21880-11032784

PATIENT
  Age: 71 Year
  Sex: Female

DRUGS (10)
  1. LIDOCAINE [Concomitant]
  2. OXYCONTIN [Concomitant]
  3. ZOMETA [Concomitant]
  4. OXYCODONE HCL [Concomitant]
  5. XANAX [Concomitant]
  6. TRAZODONE HCL [Concomitant]
  7. REVLIMID [Suspect]
     Indication: MULTIPLE MYELOMA
     Dosage: 15 MG, DAILY FOR 21 DAYS, PO
     Route: 048
     Dates: start: 20091013
  8. DEXAMETHASONE [Concomitant]
  9. PRILOSEC [Concomitant]
  10. VALTREX [Concomitant]

REACTIONS (1)
  - URINARY TRACT INFECTION [None]
